FAERS Safety Report 24540766 (Version 1)
Quarter: 2024Q4

REPORT INFORMATION
  Report Type: Spontaneous
  Country: CA (occurrence: CA)
  Receive Date: 20241023
  Receipt Date: 20241023
  Transmission Date: 20250114
  Serious: Yes (Hospitalization)
  Sender: PFIZER
  Company Number: CA-PFIZER INC-PV202200127340

PATIENT
  Age: 65 Year
  Sex: Male
  Weight: 73 kg

DRUGS (6)
  1. INLYTA [Suspect]
     Active Substance: AXITINIB
     Indication: Metastatic renal cell carcinoma
     Dosage: 3 MG, 2X/DAY, BID (DAY: 1 CYCLE: 4)
     Route: 048
     Dates: start: 20230123
  2. INLYTA [Suspect]
     Active Substance: AXITINIB
     Dosage: 3 MG, 2X/DAY, BID (DAY:1, CYCLE :12)
     Route: 048
     Dates: start: 20230123
  3. INLYTA [Suspect]
     Active Substance: AXITINIB
     Dosage: TAKE 3 TABLETS, 3 MG TOTAL BY MOUTH EVERY 12 HOURS FOR 21 DAYS, DAY 1 CYCLE 18
     Route: 048
  4. INLYTA [Suspect]
     Active Substance: AXITINIB
     Dosage: TAKE 3 TABLETS, 3 MG TOTAL BY MOUTH EVERY 12 HOURS FOR 21 DAYS, DAY 1 CYCLE 23
     Route: 048
  5. KEYTRUDA [Concomitant]
     Active Substance: PEMBROLIZUMAB
     Dosage: UNK
     Dates: start: 20221117
  6. KEYTRUDA [Concomitant]
     Active Substance: PEMBROLIZUMAB
     Dosage: UNK, CYCLE 4

REACTIONS (1)
  - Vascular graft [Unknown]
